FAERS Safety Report 7194655-9 (Version None)
Quarter: 2010Q4

REPORT INFORMATION
  Report Type: 
  Country: None (occurrence: None)
  Receive Date: 20101223
  Receipt Date: 20100917
  Transmission Date: 20110411
  Serious: No
  Sender: FDA-Public Use
  Company Number: US-AMGEN-KDL439090

PATIENT

DRUGS (6)
  1. ENBREL [Suspect]
     Indication: RHEUMATOID ARTHRITIS
     Dosage: 50 MG, QWK
     Route: 058
     Dates: start: 20100510
  2. METHOTREXATE [Concomitant]
     Dosage: 2.5 MG, QWK
     Route: 048
  3. QUINAPRIL HYDROCHLORIDE [Concomitant]
     Dosage: 40 MG, QD
  4. FOLIC ACID [Concomitant]
     Dosage: 1 MG, QD
  5. ERGOCALCIFEROL [Concomitant]
  6. ACETYLSALICYLIC ACID [Concomitant]

REACTIONS (6)
  - FATIGUE [None]
  - LIP SWELLING [None]
  - MUSCULOSKELETAL STIFFNESS [None]
  - PAIN [None]
  - RASH [None]
  - SKIN ULCER [None]
